FAERS Safety Report 9994106 (Version 2)
Quarter: 2014Q1

REPORT INFORMATION
  Report Type: Spontaneous
  Country: US (occurrence: US)
  Receive Date: 20140310
  Receipt Date: 20140310
  Transmission Date: 20141002
  Serious: No
  Sender: FDA-Public Use
  Company Number: US-AMGEN-USASP2013062912

PATIENT
  Age: 50 Year
  Sex: Female

DRUGS (4)
  1. SENSIPAR [Suspect]
     Indication: HYPERPARATHYROIDISM SECONDARY
     Dosage: 30 MG, 3 TIMES/WK
     Route: 048
     Dates: start: 20130821
  2. LASIX                              /00032601/ [Concomitant]
     Dosage: 40 MG, Q4WK
     Route: 048
     Dates: start: 20110803
  3. LABETALOL [Concomitant]
     Dosage: 300 MG, BID
     Route: 048
     Dates: start: 20090422
  4. RENVELA [Concomitant]
     Dosage: 2 WITH MEAL
     Route: 048
     Dates: start: 20130808

REACTIONS (6)
  - Gait disturbance [Unknown]
  - Somnolence [Unknown]
  - Lymphadenopathy [Unknown]
  - Irritability [Unknown]
  - Local swelling [Unknown]
  - Fatigue [Unknown]
